FAERS Safety Report 8247833-1 (Version None)
Quarter: 2012Q1

REPORT INFORMATION
  Report Type: 
  Country: None (occurrence: None)
  Receive Date: 20120330
  Receipt Date: 20120327
  Transmission Date: 20120608
  Serious: Yes (Hospitalization)
  Sender: FDA-Public Use
  Company Number: DE-ABBOTT-12P-062-0919087-00

PATIENT
  Sex: Female

DRUGS (1)
  1. HUMIRA [Suspect]
     Indication: RHEUMATOID ARTHRITIS
     Route: 058
     Dates: start: 20070801

REACTIONS (7)
  - BRONCHIAL DISORDER [None]
  - DYSPNOEA [None]
  - FATIGUE [None]
  - NASOPHARYNGITIS [None]
  - PNEUMONIA [None]
  - COUGH [None]
  - ASTHMA [None]
